FAERS Safety Report 5224909-4 (Version None)
Quarter: 2007Q1

REPORT INFORMATION
  Report Type: 
  Country: None (occurrence: None)
  Receive Date: 20070126
  Receipt Date: 20070111
  Transmission Date: 20070707
  Serious: Yes (Hospitalization)
  Sender: FDA-Public Use
  Company Number: 2007RR-05210

PATIENT
  Age: 91 Year
  Sex: Female

DRUGS (13)
  1. DIGOXIN [Suspect]
     Indication: ATRIAL FIBRILLATION
     Dosage: 125 + 62.5 UG, QD, ORAL - SEE IMAGE
     Route: 048
     Dates: end: 20061210
  2. DIGOXIN [Suspect]
     Indication: ATRIAL FIBRILLATION
     Dosage: 125 + 62.5 UG, QD, ORAL - SEE IMAGE
     Route: 048
     Dates: start: 20061210
  3. FLUOXETINE [Suspect]
     Indication: DEPRESSION
     Dosage: 20 MG, UNK, ORAL
     Route: 048
     Dates: end: 20061208
  4. ADCAL-D3 [Concomitant]
  5. ASPIRIN [Concomitant]
  6. BRICANYL [Concomitant]
  7. CO-AMILOFRUSE [Concomitant]
  8. LEVOTHYROXINE SODIUM [Concomitant]
  9. LOFEPRAMINE [Concomitant]
  10. ACETAMINOPHEN [Concomitant]
  11. PULMICORT [Concomitant]
  12. SENNA [Concomitant]
  13. ZOPICLONE (ZOPICLONE) [Concomitant]

REACTIONS (2)
  - CONFUSIONAL STATE [None]
  - UNRESPONSIVE TO STIMULI [None]
